FAERS Safety Report 5620190-2 (Version None)
Quarter: 2008Q1

REPORT INFORMATION
  Report Type: 
  Country: None (occurrence: None)
  Receive Date: 20080208
  Receipt Date: 20080205
  Transmission Date: 20080703
  Serious: Yes (Death)
  Sender: FDA-Public Use
  Company Number: US-SANOFI-SYNTHELABO-A03200800277

PATIENT
  Age: 28 Year
  Sex: Male

DRUGS (7)
  1. AMBIEN [Suspect]
     Indication: INSOMNIA
     Dosage: UNK
     Route: 048
  2. DONORMYL-DOXYLAMINE [Interacting]
     Indication: DRUG USE FOR UNKNOWN INDICATION
     Dosage: UNK
     Route: 065
  3. ALPRAZOLAM [Interacting]
     Indication: DRUG USE FOR UNKNOWN INDICATION
     Dosage: UNK
     Route: 065
  4. TEMAZEPAM [Interacting]
     Indication: DRUG USE FOR UNKNOWN INDICATION
     Dosage: UNK
     Route: 065
  5. LORMETAZEPAM [Interacting]
     Indication: DRUG USE FOR UNKNOWN INDICATION
     Dosage: UNK
     Route: 065
  6. DIAZEPAM [Interacting]
     Indication: DRUG USE FOR UNKNOWN INDICATION
     Dosage: UNK
     Route: 065
  7. ZOPICLONE [Interacting]
     Indication: DRUG USE FOR UNKNOWN INDICATION
     Dosage: UNK
     Route: 065

REACTIONS (2)
  - DEATH [None]
  - MULTIPLE DRUG OVERDOSE [None]
